FAERS Safety Report 7232487-3 (Version None)
Quarter: 2011Q1

REPORT INFORMATION
  Report Type: 
  Country: None (occurrence: None)
  Receive Date: 20110119
  Receipt Date: 20110113
  Transmission Date: 20110831
  Serious: Yes (Other)
  Sender: FDA-Public Use
  Company Number: US-BAYER-2011-005377

PATIENT
  Sex: Female
  Weight: 86.168 kg

DRUGS (12)
  1. FLEXERIL [Concomitant]
     Dosage: 10 MG, UNK
  2. PROVIGIL [Concomitant]
     Dosage: 200 MG, UNK
  3. VITAMIN B COMPLEX [Concomitant]
  4. LIPITOR [Concomitant]
     Dosage: 10 MG, UNK
  5. VITAMIN D [Concomitant]
  6. BETASERON [Suspect]
     Indication: MULTIPLE SCLEROSIS
     Dosage: 1 ML, QOD
     Route: 058
  7. OMEPRAZOLE [Concomitant]
     Dosage: 20 MG, UNK
  8. ASCORBIC ACID [Concomitant]
     Dosage: 250 MG, UNK
  9. CINNAMON [Concomitant]
     Dosage: 500 MG, UNK
  10. FISH OIL [Concomitant]
  11. BACLOFEN [Concomitant]
     Dosage: 10 MG, UNK
  12. FUROSEMIDE [Concomitant]
     Dosage: 20 MG, UNK

REACTIONS (2)
  - CONVULSION [None]
  - FEELING COLD [None]
